FAERS Safety Report 6526607-3 (Version None)
Quarter: 2010Q1

REPORT INFORMATION
  Report Type: 
  Country: None (occurrence: None)
  Receive Date: 20100105
  Receipt Date: 20091228
  Transmission Date: 20100710
  Serious: Yes (Other)
  Sender: FDA-Public Use
  Company Number: US-ROCHE-673348

PATIENT
  Age: 41 Year
  Sex: Male
  Weight: 89.4 kg

DRUGS (5)
  1. PEGASYS [Suspect]
     Indication: HEPATITIS C
     Route: 065
     Dates: start: 20081107
  2. PEGASYS [Suspect]
     Route: 065
  3. COPEGUS [Suspect]
     Indication: HEPATITIS C
     Route: 048
     Dates: start: 20081107
  4. COPEGUS [Suspect]
     Route: 048
  5. METHADONE [Concomitant]
     Route: 048

REACTIONS (1)
  - DEEP VEIN THROMBOSIS [None]
